FAERS Safety Report 6862569-7 (Version None)
Quarter: 2010Q3

REPORT INFORMATION
  Report Type: 
  Country: None (occurrence: None)
  Receive Date: 20100716
  Receipt Date: 20100705
  Transmission Date: 20110219
  Serious: Yes (Death, Other)
  Sender: FDA-Public Use
  Company Number: 2009AL004499

PATIENT
  Age: 33 Year
  Sex: Female

DRUGS (5)
  1. VENLAFAXINE HCL [Suspect]
     Dosage: 225 MG;UNK;PO
     Route: 048
     Dates: start: 20040101
  2. CLOZARIL [Suspect]
     Indication: SCHIZOPHRENIA
     Dates: start: 20050819
  3. CLOZARIL [Suspect]
     Indication: SCHIZOPHRENIA
     Dosage: 650 MG;
     Dates: start: 20090501
  4. VALPROIC ACID [Concomitant]
  5. ATENOLOL [Concomitant]

REACTIONS (4)
  - DRUG INTERACTION [None]
  - DRUG TOXICITY [None]
  - FALL [None]
  - GRAND MAL CONVULSION [None]
